FAERS Safety Report 9674456 (Version 2)
Quarter: 2013Q4

REPORT INFORMATION
  Report Type: Spontaneous
  Country: US (occurrence: US)
  Receive Date: 20131107
  Receipt Date: 20131107
  Transmission Date: 20140711
  Serious: Yes (Other)
  Sender: FDA-Public Use
  Company Number: US-ROCHE-1294254

PATIENT
  Age: 39 Year
  Sex: Female
  Weight: 98 kg

DRUGS (2)
  1. KADCYLA [Suspect]
     Indication: BREAST CANCER METASTATIC
     Route: 042
     Dates: start: 20130626, end: 20130924
  2. HERCEPTIN [Concomitant]
     Indication: METASTASES TO MENINGES
     Route: 037
     Dates: start: 20130429

REACTIONS (4)
  - Musculoskeletal pain [Unknown]
  - Blood creatine phosphokinase increased [Unknown]
  - Deafness [Recovering/Resolving]
  - Myalgia [Recovered/Resolved]
